FAERS Safety Report 8150630-9 (Version None)
Quarter: 2012Q1

REPORT INFORMATION
  Report Type: 
  Country: None (occurrence: None)
  Receive Date: 20120220
  Receipt Date: 20120213
  Transmission Date: 20120608
  Serious: Yes (Other)
  Sender: FDA-Public Use
  Company Number: PHEH2012US003099

PATIENT
  Sex: Male
  Weight: 95.238 kg

DRUGS (18)
  1. MORPHINE [Concomitant]
     Dosage: 15 MG, BID
     Route: 048
  2. SIMVASTATIN [Concomitant]
     Dosage: 80 MG, UNK
     Route: 048
  3. LIDOCAINE [Concomitant]
     Dosage: 5 %, PRN
  4. INSULIN LISPRO [Concomitant]
     Dosage: 100 U/ML, UNK
     Route: 058
  5. VITAMIN D [Concomitant]
     Dosage: 2000 U, UNK
     Route: 048
  6. ASPIRIN [Concomitant]
     Dosage: 81 MG, DAILY
     Route: 048
  7. METFORMIN HCL [Concomitant]
     Dosage: 500 MG, TID
     Route: 048
  8. CYANOCOBALAMIN [Concomitant]
     Dosage: UNK UKN, UNK
  9. ZESTRIL [Concomitant]
     Dosage: UNK UKN, UNK
  10. MULTI-VITAMINS [Concomitant]
     Dosage: UNK UKN, UNK
  11. GILENYA [Suspect]
     Dosage: 0.5 MG, DAILY
     Route: 048
     Dates: start: 20120120, end: 20120201
  12. INSULIN GLARGINE [Concomitant]
     Dosage: 40 U, UNK
  13. MODAFINIL [Concomitant]
     Dosage: 200 MG, BID
     Route: 048
  14. CLONAZEPAM [Concomitant]
     Dosage: 1 MG, QD
     Route: 048
  15. ALLEGRA [Concomitant]
     Dosage: 180 MG, QHS
  16. OXYCODONE HCL [Concomitant]
     Indication: PAIN
     Dosage: 5 MG, UNK
     Route: 048
  17. LISINOPRIL [Concomitant]
     Dosage: 40 MG, DAILY
     Route: 048
  18. ADVAIR DISKUS 100/50 [Concomitant]
     Dosage: UNK UKN, UNK

REACTIONS (8)
  - TANDEM GAIT TEST [None]
  - HEART RATE DECREASED [None]
  - BLOOD CALCIUM INCREASED [None]
  - FATIGUE [None]
  - ATRIOVENTRICULAR BLOCK [None]
  - SENSORY DISTURBANCE [None]
  - CEREBELLAR SYNDROME [None]
  - MYOCARDIAL INFARCTION [None]
